FAERS Safety Report 11104401 (Version 1)
Quarter: 2015Q2

REPORT INFORMATION
  Report Type: Spontaneous
  Country: DE (occurrence: DE)
  Receive Date: 20150511
  Receipt Date: 20150511
  Transmission Date: 20150821
  Serious: Yes (Death)
  Sender: FDA-Public Use
  Company Number: DE-SA-2015SA061253

PATIENT
  Age: 86 Year
  Sex: Female
  Weight: 75 kg

DRUGS (8)
  1. DIGIMERCK [Concomitant]
     Active Substance: DIGITOXIN
  2. TORASEMIDE [Concomitant]
     Active Substance: TORSEMIDE
  3. ISOKET [Concomitant]
     Active Substance: ISOSORBIDE DINITRATE
  4. FERLIXIT [Suspect]
     Active Substance: SODIUM FERRIC GLUCONATE COMPLEX
     Indication: IRON DEFICIENCY ANAEMIA
     Route: 042
     Dates: start: 20141223, end: 20141223
  5. LISINOPRIL. [Concomitant]
     Active Substance: LISINOPRIL
  6. ALLOPURINOL. [Concomitant]
     Active Substance: ALLOPURINOL
  7. XARELTO [Concomitant]
     Active Substance: RIVAROXABAN
  8. PREDNISOLONE. [Concomitant]
     Active Substance: PREDNISOLONE

REACTIONS (2)
  - Cardiac arrest [Fatal]
  - Loss of consciousness [Fatal]

NARRATIVE: CASE EVENT DATE: 20141223
